FAERS Safety Report 20737233 (Version 1)
Quarter: 2022Q2

REPORT INFORMATION
  Report Type: Spontaneous
  Country: US (occurrence: US)
  Receive Date: 20220421
  Receipt Date: 20220421
  Transmission Date: 20220721
  Serious: Yes (Other)
  Sender: FDA-Public Use
  Company Number: US-TEVA-2022-US-2027437

PATIENT
  Age: 64 Year
  Sex: Female

DRUGS (1)
  1. LORAZEPAM [Suspect]
     Active Substance: LORAZEPAM
     Indication: Heart rate abnormal
     Route: 065
     Dates: start: 2015

REACTIONS (3)
  - Marginal zone lymphoma [Unknown]
  - Drug dependence [Not Recovered/Not Resolved]
  - Wrong technique in product usage process [Unknown]
